FAERS Safety Report 14702274 (Version 1)
Quarter: 2018Q2

REPORT INFORMATION
  Report Type: Spontaneous
  Country: IL (occurrence: IL)
  Receive Date: 20180401
  Receipt Date: 20180401
  Transmission Date: 20180711
  Serious: Yes (Death, Other)
  Sender: FDA-Public Use
  Company Number: IL-SHIRE-IL201810785

PATIENT

DRUGS (11)
  1. PRAMIN                             /00041902/ [Concomitant]
     Indication: PRODUCT USED FOR UNKNOWN INDICATION
  2. GAMMAPLEX [Concomitant]
     Active Substance: HUMAN IMMUNOGLOBULIN G
     Indication: INFECTION
  3. SIMVASTATIN. [Concomitant]
     Active Substance: SIMVASTATIN
     Indication: HYPERCHOLESTEROLAEMIA
  4. OMR-IGG-AM [Concomitant]
     Indication: INFECTION
  5. KIOVIG [Suspect]
     Active Substance: HUMAN IMMUNOGLOBULIN G
     Indication: HYPOGAMMAGLOBULINAEMIA
     Dosage: ONE VIAL10 G, UNK
     Route: 042
     Dates: start: 20180318, end: 20180318
  6. AHISTON [Concomitant]
     Active Substance: CHLORPHENIRAMINE MALEATE
     Indication: URTICARIA CHRONIC
  7. OMEPRADEX [Concomitant]
     Active Substance: OMEPRAZOLE
     Indication: HIATUS HERNIA
  8. IMBRUVICA [Concomitant]
     Active Substance: IBRUTINIB
     Indication: CHRONIC LYMPHOCYTIC LEUKAEMIA
  9. CARDILOC [Concomitant]
     Active Substance: BISOPROLOL FUMARATE
     Indication: HYPERTENSION
  10. VABEN [Concomitant]
     Active Substance: OXAZEPAM
     Indication: INSOMNIA
  11. KIOVIG [Suspect]
     Active Substance: HUMAN IMMUNOGLOBULIN G
     Indication: LYMPHOCYTIC LEUKAEMIA

REACTIONS (4)
  - Pulmonary haemorrhage [Fatal]
  - Foaming at mouth [Fatal]
  - Dyspnoea [Fatal]
  - Hypersensitivity [Unknown]
